FAERS Safety Report 10442217 (Version 1)
Quarter: 2014Q3

REPORT INFORMATION
  Report Type: Spontaneous
  Country: JP (occurrence: JP)
  Receive Date: 20140909
  Receipt Date: 20140909
  Transmission Date: 20150326
  Serious: Yes (Death, Hospitalization, Other)
  Sender: FDA-Public Use
  Company Number: PHHY2014JP111534

PATIENT
  Age: 57 Year
  Sex: Female

DRUGS (4)
  1. CAPTOPRIL. [Suspect]
     Active Substance: CAPTOPRIL
  2. PREDNISOLONE. [Suspect]
     Active Substance: PREDNISOLONE
     Dosage: 30 MG, PER DAY
  3. METHOTREXATE [Concomitant]
     Active Substance: METHOTREXATE
     Indication: RHEUMATOID ARTHRITIS
     Dosage: 4 MG, PER WEEK
  4. PREDNISOLONE. [Suspect]
     Active Substance: PREDNISOLONE
     Indication: RHEUMATOID ARTHRITIS
     Dosage: 5 MG, PER DAY

REACTIONS (26)
  - Fatigue [Unknown]
  - Bone erosion [Unknown]
  - Blood creatinine increased [Unknown]
  - Death [Fatal]
  - Pyrexia [Unknown]
  - Myalgia [Unknown]
  - Pigmentation disorder [Unknown]
  - Scleroderma [Unknown]
  - Pericardial effusion [Unknown]
  - Systemic sclerosis [Unknown]
  - Myositis [Unknown]
  - Arthritis [Unknown]
  - Tendon disorder [Unknown]
  - Renal impairment [Unknown]
  - Haematuria [Unknown]
  - Thrombotic microangiopathy [Unknown]
  - Pericarditis [Unknown]
  - Oedema peripheral [Unknown]
  - Thrombocytopenia [Unknown]
  - Dyspnoea [Unknown]
  - Joint ankylosis [Unknown]
  - Joint dislocation [Unknown]
  - Proteinuria [Unknown]
  - Blood pressure increased [Unknown]
  - Pleural effusion [Unknown]
  - Interstitial lung disease [Unknown]
